FAERS Safety Report 22399494 (Version 2)
Quarter: 2023Q2

REPORT INFORMATION
  Report Type: Spontaneous
  Country: CA (occurrence: CA)
  Receive Date: 20230602
  Receipt Date: 20230621
  Transmission Date: 20230721
  Serious: Yes (Other)
  Sender: FDA-Public Use
  Company Number: CA-AMERICAN REGENT INC-2023001303

PATIENT

DRUGS (1)
  1. VENOFER [Suspect]
     Active Substance: IRON SUCROSE
     Indication: Product used for unknown indication
     Dosage: 300 MILLIGRAM
     Route: 042
     Dates: start: 20230331, end: 20230331

REACTIONS (9)
  - Hypoaesthesia [Unknown]
  - Paraesthesia [Unknown]
  - Palpitations [Unknown]
  - Anxiety [Unknown]
  - Flushing [Unknown]
  - Feeling hot [Unknown]
  - Dyspnoea [Unknown]
  - Oedema peripheral [Unknown]
  - Product quality issue [Unknown]

NARRATIVE: CASE EVENT DATE: 20230331
